FAERS Safety Report 22253574 (Version 2)
Quarter: 2023Q2

REPORT INFORMATION
  Report Type: Spontaneous
  Country: US (occurrence: US)
  Receive Date: 20230426
  Receipt Date: 20230428
  Transmission Date: 20230722
  Serious: Yes (Other)
  Sender: FDA-Public Use
  Company Number: US-ABBVIE-4740989

PATIENT
  Sex: Male

DRUGS (6)
  1. LUPRON [Suspect]
     Active Substance: LEUPROLIDE ACETATE
     Indication: Prostate cancer
     Route: 065
     Dates: start: 202012
  2. ENZALUTAMIDE [Suspect]
     Active Substance: ENZALUTAMIDE
     Indication: Prostate cancer
     Dosage: 160 MILLIGRAM
     Route: 048
     Dates: start: 2021, end: 20221129
  3. ENZALUTAMIDE [Suspect]
     Active Substance: ENZALUTAMIDE
     Indication: Prostate cancer
     Dosage: 150 MILLIGRAM
     Route: 048
     Dates: start: 20201120
  4. CASODEX [Suspect]
     Active Substance: BICALUTAMIDE
     Indication: Product used for unknown indication
     Route: 065
     Dates: start: 20201201
  5. LUPRON DEPOT-PED [Concomitant]
     Active Substance: LEUPROLIDE ACETATE
     Indication: Product used for unknown indication
     Dosage: KIT, 11.25 MG
  6. TYLENOL [Concomitant]
     Active Substance: ACETAMINOPHEN
     Indication: Product used for unknown indication
     Dosage: STRENGTH: 325 MILLIGRAM
     Route: 048

REACTIONS (28)
  - Acute kidney injury [Unknown]
  - Alopecia [Unknown]
  - General physical condition abnormal [Unknown]
  - Muscle disorder [Unknown]
  - Fatigue [Unknown]
  - Haematuria [Unknown]
  - Micturition urgency [Unknown]
  - Blood urine present [Unknown]
  - Flank pain [Unknown]
  - Oedema [Unknown]
  - Neoplasm malignant [Unknown]
  - Testicular retraction [Unknown]
  - Hair growth abnormal [Unknown]
  - Weight increased [Unknown]
  - Swelling [Unknown]
  - Renal disorder [Unknown]
  - Weight bearing difficulty [Unknown]
  - Dysuria [Unknown]
  - Pollakiuria [Unknown]
  - Coronavirus infection [Unknown]
  - Hot flush [Unknown]
  - Scratch [Unknown]
  - Head discomfort [Unknown]
  - Memory impairment [Unknown]
  - Gynaecomastia [Unknown]
  - Skin atrophy [Unknown]
  - Weight decreased [Unknown]
  - Asthenia [Unknown]
